FAERS Safety Report 12645643 (Version 3)
Quarter: 2016Q3

REPORT INFORMATION
  Report Type: Spontaneous
  Country: US (occurrence: US)
  Receive Date: 20160811
  Receipt Date: 20160923
  Transmission Date: 20161109
  Serious: No
  Sender: FDA-Public Use
  Company Number: US-PFIZER INC-2016370751

PATIENT
  Age: 49 Year
  Sex: Female

DRUGS (9)
  1. ZOFRAN [Concomitant]
     Active Substance: ONDANSETRON HYDROCHLORIDE
     Indication: NAUSEA
     Dosage: 8 MG, UNK (2-3 TIMES A DAY)
     Route: 048
     Dates: start: 201405
  2. PANTOPRAZOLE [Concomitant]
     Active Substance: PANTOPRAZOLE SODIUM
     Indication: NAUSEA
     Dosage: 40 MG, 1X/DAY
     Route: 048
  3. FUROSEMIDE. [Concomitant]
     Active Substance: FUROSEMIDE
     Indication: FLUID RETENTION
     Dosage: 40 MG, AS NEEDED (ONCE A DAY)
     Route: 048
  4. XALKORI [Suspect]
     Active Substance: CRIZOTINIB
     Indication: LUNG NEOPLASM MALIGNANT
     Dosage: 250 MG, 2X/DAY
     Route: 048
     Dates: start: 201405
  5. KLOR-CON [Concomitant]
     Active Substance: POTASSIUM CHLORIDE
     Dosage: 20 MG, AS NEEDED (TWICE A DAY)
     Route: 048
  6. ALBUTEROL. [Concomitant]
     Active Substance: ALBUTEROL
     Indication: DYSPNOEA
     Dosage: UNK, AS NEEDED
     Dates: start: 201403
  7. PANTOPRAZOLE [Concomitant]
     Active Substance: PANTOPRAZOLE SODIUM
     Indication: ABDOMINAL DISCOMFORT
  8. LORAZEPAM. [Concomitant]
     Active Substance: LORAZEPAM
     Indication: NAUSEA
     Dosage: 1 MG, 2X/DAY
     Route: 048
     Dates: start: 201403
  9. AZELASTINE [Concomitant]
     Active Substance: AZELASTINE
     Indication: NASAL CONGESTION
     Dosage: UNK, AS NEEDED
     Dates: start: 2014

REACTIONS (7)
  - Diarrhoea [Not Recovered/Not Resolved]
  - Pleurisy [Not Recovered/Not Resolved]
  - Visual impairment [Unknown]
  - Nervous system disorder [Unknown]
  - Nausea [Not Recovered/Not Resolved]
  - Diplopia [Not Recovered/Not Resolved]
  - Cough [Not Recovered/Not Resolved]
